FAERS Safety Report 7073648-6 (Version None)
Quarter: 2010Q4

REPORT INFORMATION
  Report Type: 
  Country: None (occurrence: None)
  Receive Date: 20101029
  Receipt Date: 20100726
  Transmission Date: 20110411
  Serious: No
  Sender: FDA-Public Use
  Company Number: A0872328A

PATIENT
  Age: 78 Year
  Sex: Female

DRUGS (4)
  1. ADVAIR DISKUS 100/50 [Suspect]
     Indication: CHRONIC OBSTRUCTIVE PULMONARY DISEASE
     Dosage: 1PUFF PER DAY
     Route: 055
     Dates: start: 20020101, end: 20100712
  2. SIMVASTATIN [Concomitant]
  3. DIOVAN [Concomitant]
  4. QVAR 40 [Concomitant]

REACTIONS (1)
  - STOMATITIS [None]
